FAERS Safety Report 5356980-3 (Version None)
Quarter: 2007Q2

REPORT INFORMATION
  Report Type: 
  Country: None (occurrence: None)
  Receive Date: 20070328
  Receipt Date: 20070125
  Transmission Date: 20071010
  Serious: Yes (Other)
  Sender: FDA-Public Use
  Company Number: 13657374

PATIENT
  Sex: Female

DRUGS (1)
  1. EMSAM [Suspect]
     Dosage: 9 MILLIGRAM, 24 HOUR TD
     Route: 062

REACTIONS (2)
  - ANGINA PECTORIS [None]
  - HYPOAESTHESIA [None]
